FAERS Safety Report 15082043 (Version 1)
Quarter: 2018Q2

REPORT INFORMATION
  Report Type: Spontaneous
  Country: FR (occurrence: FR)
  Receive Date: 20180628
  Receipt Date: 20180628
  Transmission Date: 20180711
  Serious: Yes (Other)
  Sender: FDA-Public Use
  Company Number: FR-TEVA-2018-FR-916939

PATIENT
  Sex: Female

DRUGS (1)
  1. COPAXONE [Suspect]
     Active Substance: GLATIRAMER ACETATE
     Indication: MULTIPLE SCLEROSIS
     Dosage: COPAXONE: 40 MG/ML
     Route: 058

REACTIONS (5)
  - Urinary tract infection [Unknown]
  - Injection site pain [Unknown]
  - Fall [Unknown]
  - Gait disturbance [Unknown]
  - Injection site nodule [Unknown]

NARRATIVE: CASE EVENT DATE: 2016
